FAERS Safety Report 7929904-X (Version None)
Quarter: 2011Q4

REPORT INFORMATION
  Report Type: 
  Country: None (occurrence: None)
  Receive Date: 20111121
  Receipt Date: 20111117
  Transmission Date: 20120403
  Serious: Yes (Death)
  Sender: FDA-Public Use
  Company Number: PHHY2011AR101384

PATIENT
  Sex: Female

DRUGS (1)
  1. STALEVO 100 [Suspect]
     Indication: DEMENTIA ALZHEIMER'S TYPE
     Dosage: 4 DF DAILY
     Route: 048
     Dates: start: 20110914

REACTIONS (1)
  - CARDIO-RESPIRATORY ARREST [None]
